FAERS Safety Report 7215447-8 (Version None)
Quarter: 2011Q1

REPORT INFORMATION
  Report Type: 
  Country: None (occurrence: None)
  Receive Date: 20110107
  Receipt Date: 20110103
  Transmission Date: 20110831
  Serious: Yes (Hospitalization, Other)
  Sender: FDA-Public Use
  Company Number: FR-ROCHE-741155

PATIENT
  Sex: Male
  Weight: 100 kg

DRUGS (2)
  1. INTERFERON ALFA [Interacting]
     Route: 065
  2. AVASTIN [Suspect]
     Route: 042
     Dates: start: 20100922, end: 20101006

REACTIONS (2)
  - DRUG INTERACTION [None]
  - THROMBOCYTOPENIA [None]
